FAERS Safety Report 19039429 (Version 1)
Quarter: 2021Q1

REPORT INFORMATION
  Report Type: Report from Study
  Country: US (occurrence: US)
  Receive Date: 20210322
  Receipt Date: 20210322
  Transmission Date: 20210420
  Serious: Yes (Hospitalization, Other)
  Sender: FDA-Public Use
  Company Number: US-TAKEDA-US201843286

PATIENT
  Age: 52 Year
  Sex: Female
  Weight: 51.25 kg

DRUGS (12)
  1. TEDUGLUTIDE [Suspect]
     Active Substance: TEDUGLUTIDE
     Indication: SHORT-BOWEL SYNDROME
     Dosage: 2.8 MILLIGRAM, 7 DOSES PER WEEK
     Route: 065
     Dates: start: 20131020, end: 20150202
  2. PANTOPRAZOLE [Concomitant]
     Active Substance: PANTOPRAZOLE
     Indication: GASTROOESOPHAGEAL REFLUX DISEASE
  3. TEDUGLUTIDE [Suspect]
     Active Substance: TEDUGLUTIDE
     Dosage: 2.8 MILLIGRAM, 3 DOSES PER WEEK
     Route: 065
     Dates: start: 20150202, end: 201511
  4. LACTOBACILLUS RHAMNOSUS [Concomitant]
     Active Substance: LACTOBACILLUS RHAMNOSUS
     Indication: PROPHYLAXIS
  5. VITAMIN D3 [Concomitant]
     Active Substance: CHOLECALCIFEROL
     Indication: VITAMIN SUPPLEMENTATION
  6. TEDUGLUTIDE [Suspect]
     Active Substance: TEDUGLUTIDE
     Indication: SHORT-BOWEL SYNDROME
     Dosage: 2.8 MILLIGRAM, 7 DOSES PER WEEK
     Route: 065
     Dates: start: 20131020, end: 20150202
  7. TEDUGLUTIDE [Suspect]
     Active Substance: TEDUGLUTIDE
     Indication: SHORT-BOWEL SYNDROME
     Dosage: 2.8 MILLIGRAM, 7 DOSES PER WEEK
     Route: 065
     Dates: start: 20131020, end: 20150202
  8. TEDUGLUTIDE [Suspect]
     Active Substance: TEDUGLUTIDE
     Dosage: 2.8 MILLIGRAM, 3 DOSES PER WEEK
     Route: 065
     Dates: start: 20150202, end: 201511
  9. TEDUGLUTIDE [Suspect]
     Active Substance: TEDUGLUTIDE
     Dosage: 2.8 MILLIGRAM, 3 DOSES PER WEEK
     Route: 065
     Dates: start: 20150202, end: 201511
  10. TEDUGLUTIDE [Suspect]
     Active Substance: TEDUGLUTIDE
     Indication: SHORT-BOWEL SYNDROME
     Dosage: 2.8 MILLIGRAM, 7 DOSES PER WEEK
     Route: 065
     Dates: start: 20131020, end: 20150202
  11. TEDUGLUTIDE [Suspect]
     Active Substance: TEDUGLUTIDE
     Dosage: 2.8 MILLIGRAM, 3 DOSES PER WEEK
     Route: 065
     Dates: start: 20150202, end: 201511
  12. ERTAPENEM. [Concomitant]
     Active Substance: ERTAPENEM SODIUM
     Indication: VASCULAR DEVICE INFECTION

REACTIONS (4)
  - Peritonitis bacterial [Recovered/Resolved]
  - Lipase increased [Recovered/Resolved]
  - Escherichia sepsis [Recovered/Resolved]
  - Cholangitis acute [Recovered/Resolved]

NARRATIVE: CASE EVENT DATE: 20180505
